FAERS Safety Report 23137596 (Version 2)
Quarter: 2023Q4

REPORT INFORMATION
  Report Type: Other
  Country: US (occurrence: None)
  Receive Date: 20231102
  Receipt Date: 20231114
  Transmission Date: 20240110
  Serious: Yes (Other)
  Sender: FDA-Public Use
  Company Number: US-ROCHE-3449438

PATIENT
  Age: 44 Year
  Sex: Female

DRUGS (25)
  1. OCREVUS [Suspect]
     Active Substance: OCRELIZUMAB
     Indication: Multiple sclerosis
     Dosage: STRENGTH: 30MG/ML
     Route: 042
  2. XOLAIR [Suspect]
     Active Substance: OMALIZUMAB
     Indication: Asthma
     Route: 058
  3. XOLAIR [Suspect]
     Active Substance: OMALIZUMAB
  4. ACETAMINOPHEN [Concomitant]
     Active Substance: ACETAMINOPHEN
  5. BACLOFEN [Concomitant]
     Active Substance: BACLOFEN
  6. BENADRYL [Concomitant]
     Active Substance: DIPHENHYDRAMINE HYDROCHLORIDE
  7. CETIRIZINE HYDROCHLORIDE [Concomitant]
     Active Substance: CETIRIZINE HYDROCHLORIDE
  8. FAMOTIDINE [Concomitant]
     Active Substance: FAMOTIDINE
  9. FERROUS SULFATE [Concomitant]
     Active Substance: FERROUS SULFATE
  10. GABAPENTIN [Concomitant]
     Active Substance: GABAPENTIN
  11. HYDROXYCHLOROQUINE [Concomitant]
     Active Substance: HYDROXYCHLOROQUINE
  12. IBUPROFEN [Concomitant]
     Active Substance: IBUPROFEN
  13. LAMOTRIGINE [Concomitant]
     Active Substance: LAMOTRIGINE
  14. LEVALBUTEROL [Concomitant]
     Active Substance: LEVALBUTEROL
  15. LEVOTHYROXINE [Concomitant]
     Active Substance: LEVOTHYROXINE
  16. MELATONIN [Concomitant]
     Active Substance: MELATONIN
  17. MONTELUKAST [Concomitant]
     Active Substance: MONTELUKAST SODIUM
  18. NURTEC ODT [Concomitant]
     Active Substance: RIMEGEPANT SULFATE
  19. OMEPRAZOLE [Concomitant]
     Active Substance: OMEPRAZOLE
  20. ROSUVASTATIN [Concomitant]
     Active Substance: ROSUVASTATIN
  21. SIMETHICONE (DIMETHICONE) [Concomitant]
     Active Substance: DIMETHICONE
  22. SODIUM BICARBONATE [Concomitant]
     Active Substance: SODIUM BICARBONATE
  23. SUMATRIPTAN [Concomitant]
     Active Substance: SUMATRIPTAN
  24. MODERNA COVID-19 VACCINE [Concomitant]
     Active Substance: ELASOMERAN
  25. INFLUENZA VIRUS VACCINE [Concomitant]
     Active Substance: INFLUENZA VIRUS VACCINE

REACTIONS (8)
  - Pneumonia [Unknown]
  - Gastrooesophageal reflux disease [Unknown]
  - Pain [Unknown]
  - Hypertension [Unknown]
  - Migraine without aura [Unknown]
  - Vocal cord disorder [Unknown]
  - Irritable bowel syndrome [Unknown]
  - Obesity [Unknown]

NARRATIVE: CASE EVENT DATE: 20181210
